FAERS Safety Report 16839731 (Version 1)
Quarter: 2019Q4

REPORT INFORMATION
  Report Type: Spontaneous
  Country: US (occurrence: US)
  Receive Date: 20190922
  Receipt Date: 20190922
  Transmission Date: 20200122
  Serious: Yes (Hospitalization, Disabling)
  Sender: FDA-Public Use
  Company Number: None

PATIENT
  Age: 27 Year
  Sex: Female
  Weight: 76.5 kg

DRUGS (1)
  1. VENLAFAXINE [Suspect]
     Active Substance: VENLAFAXINE HYDROCHLORIDE
     Indication: ANXIETY
     Dates: start: 20190702

REACTIONS (13)
  - Palpitations [None]
  - Muscle twitching [None]
  - Dyskinesia [None]
  - Myalgia [None]
  - Restlessness [None]
  - Insomnia [None]
  - Impaired work ability [None]
  - Paraesthesia [None]
  - Hyperhidrosis [None]
  - Temperature intolerance [None]
  - Confusional state [None]
  - Impaired driving ability [None]
  - Pollakiuria [None]

NARRATIVE: CASE EVENT DATE: 20190912
